FAERS Safety Report 19786875 (Version 2)
Quarter: 2021Q3

REPORT INFORMATION
  Report Type: Spontaneous
  Country: JP (occurrence: JP)
  Receive Date: 20210903
  Receipt Date: 20210909
  Transmission Date: 20211014
  Serious: Yes (Other)
  Sender: FDA-Public Use
  Company Number: JP-CELGENEUS-JPN-20210808900

PATIENT
  Age: 60 Year
  Sex: Female

DRUGS (1)
  1. ABRAXANE [Suspect]
     Active Substance: PACLITAXEL
     Indication: BREAST CANCER
     Dosage: 12 CYCLES
     Route: 041
     Dates: start: 202003, end: 202007

REACTIONS (2)
  - Tumour haemorrhage [Unknown]
  - Tumour necrosis [Unknown]

NARRATIVE: CASE EVENT DATE: 202008
